FAERS Safety Report 18324539 (Version 2)
Quarter: 2020Q4

REPORT INFORMATION
  Report Type: Spontaneous
  Country: US (occurrence: US)
  Receive Date: 20200929
  Receipt Date: 20201008
  Transmission Date: 20210113
  Serious: Yes (Hospitalization, Other)
  Sender: FDA-Public Use
  Company Number: US-SAOL THERAPEUTICS-2020SAO00421

PATIENT
  Age: 30 Year
  Sex: Male
  Weight: 54.42 kg

DRUGS (2)
  1. LIORESAL [Suspect]
     Active Substance: BACLOFEN
     Indication: CEREBRAL PALSY
  2. LIORESAL [Suspect]
     Active Substance: BACLOFEN
     Indication: MUSCLE SPASTICITY
     Dosage: UNK
     Route: 037
     Dates: start: 2002

REACTIONS (3)
  - Skin atrophy [Unknown]
  - Implant site dehiscence [Unknown]
  - Implant site erosion [Unknown]

NARRATIVE: CASE EVENT DATE: 2020
